FAERS Safety Report 11728489 (Version 1)
Quarter: 2015Q4

REPORT INFORMATION
  Report Type: Spontaneous
  Country: US (occurrence: US)
  Receive Date: 20151112
  Receipt Date: 20151112
  Transmission Date: 20160304
  Serious: No
  Sender: FDA-Public Use
  Company Number: US-PERRIGO-14US010712

PATIENT
  Age: 42 Year
  Sex: Female
  Weight: 71.66 kg

DRUGS (2)
  1. NICOTINE POLACRILEX [Suspect]
     Active Substance: NICOTINE
     Indication: SMOKING CESSATION THERAPY
     Dosage: 4 MG, EVERY 2 HOURS
     Route: 002
     Dates: start: 201205, end: 201305
  2. OMEPRAZOLE. [Concomitant]
     Active Substance: OMEPRAZOLE
     Indication: GASTROOESOPHAGEAL REFLUX DISEASE
     Dosage: 40 MG, UNK
     Route: 065
     Dates: start: 2009

REACTIONS (3)
  - Gastrooesophageal reflux disease [Recovered/Resolved]
  - Dyspepsia [Recovered/Resolved]
  - Hiccups [Recovered/Resolved]

NARRATIVE: CASE EVENT DATE: 201205
